FAERS Safety Report 6366106-5 (Version None)
Quarter: 2009Q3

REPORT INFORMATION
  Report Type: 
  Country: None (occurrence: None)
  Receive Date: 20090920
  Receipt Date: 20090610
  Transmission Date: 20100115
  Serious: No
  Sender: FDA-Public Use
  Company Number: US-BAUSCH-2009BL002877

PATIENT
  Age: 51 Year
  Sex: Female
  Weight: 52 kg

DRUGS (3)
  1. ALAWAY [Suspect]
     Indication: SEASONAL ALLERGY
     Route: 047
     Dates: start: 20080501, end: 20090601
  2. ZYRTEC [Concomitant]
     Indication: SEASONAL ALLERGY
     Route: 048
     Dates: start: 20080501
  3. ADVANCED EYE RELIEF/EYE WASH [Concomitant]
     Indication: SEASONAL ALLERGY
     Route: 047
     Dates: start: 20080501

REACTIONS (2)
  - EXPIRED DRUG ADMINISTERED [None]
  - INSTILLATION SITE IRRITATION [None]
